FAERS Safety Report 9243356 (Version 1)
Quarter: 2013Q2

REPORT INFORMATION
  Report Type: Spontaneous
  Country: GB (occurrence: GB)
  Receive Date: 20130420
  Receipt Date: 20130420
  Transmission Date: 20140414
  Serious: Yes (Hospitalization, Other)
  Sender: FDA-Public Use
  Company Number: GB-B.I. PHARMACEUTICALS,INC./RIDGEFIELD-2013-UK-00887UK

PATIENT
  Age: 67 Year
  Sex: Male
  Weight: 75 kg

DRUGS (8)
  1. PRADAXA [Suspect]
     Dosage: 300 MG
     Route: 048
     Dates: start: 20120301
  2. ALLOPURINOL [Concomitant]
  3. BISOPROLOL [Concomitant]
  4. BUMETANIDE [Concomitant]
  5. COLCHICINE [Concomitant]
  6. DIGOXIN [Concomitant]
  7. PERINDOPRIL [Concomitant]
  8. SPIRONOLACTONE [Concomitant]

REACTIONS (2)
  - Hyperosmolar state [Not Recovered/Not Resolved]
  - Type 2 diabetes mellitus [Not Recovered/Not Resolved]
